FAERS Safety Report 9657117 (Version 3)
Quarter: 2014Q2

REPORT INFORMATION
  Report Type: Spontaneous
  Country: US (occurrence: US)
  Receive Date: 20131030
  Receipt Date: 20140605
  Transmission Date: 20141212
  Serious: Yes (Life-Threatening, Other)
  Sender: FDA-Public Use
  Company Number: US-PFIZER INC-2013308661

PATIENT
  Age: 60 Year
  Sex: Female
  Weight: 79 kg

DRUGS (10)
  1. LIPITOR [Suspect]
     Indication: LOW DENSITY LIPOPROTEIN INCREASED
     Dosage: 40 MG, DAILY
     Route: 048
     Dates: start: 200211
  2. LIPITOR [Suspect]
     Indication: CARDIOVASCULAR EVENT PROPHYLAXIS
     Dosage: 80 MG, DAILY
     Route: 048
     Dates: end: 201212
  3. CELEBREX [Concomitant]
     Dosage: 200 MG, 2X/DAY
     Dates: start: 20030304
  4. ATENOLOL [Concomitant]
     Dosage: 50 MG, 2X/DAY
     Dates: start: 20041223
  5. CALCIUM [Concomitant]
     Dosage: 1800 MG(3 600MG TABLETS), DAILY
     Dates: start: 20050721
  6. HYZAAR [Concomitant]
     Dosage: 100/25 (UNKNOWN UNITS)
     Dates: start: 20050721
  7. TIAZAC [Concomitant]
     Dosage: 300 MG, DAILY
     Dates: start: 20060627
  8. NEXIUM [Concomitant]
     Dosage: 40 MG, DAILY
     Dates: start: 20061017
  9. DETROL LA [Concomitant]
     Dosage: 4 MG, DAILY
     Dates: start: 20060801
  10. AROMASIN [Concomitant]
     Indication: CHEMOTHERAPY
     Dosage: 25 MG, DAILY

REACTIONS (6)
  - Type 2 diabetes mellitus [Not Recovered/Not Resolved]
  - Renal failure [Not Recovered/Not Resolved]
  - Myocardial infarction [Not Recovered/Not Resolved]
  - Cataract [Not Recovered/Not Resolved]
  - Diabetic neuropathy [Not Recovered/Not Resolved]
  - Hyperglycaemia [Not Recovered/Not Resolved]
